FAERS Safety Report 10584536 (Version 1)
Quarter: 2014Q4

REPORT INFORMATION
  Report Type: Report from Study
  Country: BR (occurrence: BR)
  Receive Date: 20141114
  Receipt Date: 20141114
  Transmission Date: 20150529
  Serious: Yes (Hospitalization, Other)
  Sender: FDA-Public Use
  Company Number: BR-ABBVIE-14K-020-1307472-00

PATIENT
  Sex: Male
  Weight: 58 kg

DRUGS (6)
  1. HUMIRA [Suspect]
     Active Substance: ADALIMUMAB
     Route: 058
     Dates: end: 201307
  2. HUMIRA [Suspect]
     Active Substance: ADALIMUMAB
     Indication: CROHN^S DISEASE
     Route: 058
     Dates: start: 2012, end: 2012
  3. PENTASA [Concomitant]
     Active Substance: MESALAMINE
     Indication: CROHN^S DISEASE
     Route: 048
     Dates: start: 201408
  4. HUMIRA [Suspect]
     Active Substance: ADALIMUMAB
     Route: 058
  5. HUMIRA [Suspect]
     Active Substance: ADALIMUMAB
     Route: 058
     Dates: start: 201310
  6. CLONAZEPAM. [Concomitant]
     Active Substance: CLONAZEPAM
     Indication: SLEEP DISORDER THERAPY
     Dosage: 1 OR 2 TABLETS AT NIGHT
     Route: 048

REACTIONS (14)
  - Anxiety [Unknown]
  - Nervousness [Unknown]
  - Colostomy closure [Recovering/Resolving]
  - Activities of daily living impaired [Not Recovered/Not Resolved]
  - Flatulence [Not Recovered/Not Resolved]
  - Post procedural complication [Recovering/Resolving]
  - Infection [Recovering/Resolving]
  - Gastrointestinal disorder [Not Recovered/Not Resolved]
  - Insomnia [Not Recovered/Not Resolved]
  - Computerised tomogram abnormal [Unknown]
  - Inflammation [Unknown]
  - Headache [Not Recovered/Not Resolved]
  - Weight decreased [Recovering/Resolving]
  - Crohn^s disease [Recovering/Resolving]

NARRATIVE: CASE EVENT DATE: 2013
